FAERS Safety Report 5057328-4 (Version None)
Quarter: 2006Q3

REPORT INFORMATION
  Report Type: 
  Country: None (occurrence: None)
  Receive Date: 20060721
  Receipt Date: 20050810
  Transmission Date: 20061208
  Serious: No
  Sender: FDA-Public Use
  Company Number: US-GLAXOSMITHKLINE-A0569711A

PATIENT
  Age: 62 Year
  Sex: Female
  Weight: 96.4 kg

DRUGS (3)
  1. AVANDIA [Suspect]
     Dosage: 4MG TWICE PER DAY
     Route: 048
     Dates: start: 20050601, end: 20050801
  2. METFORMIN [Concomitant]
  3. AMARYL [Concomitant]

REACTIONS (2)
  - DYSPNOEA [None]
  - WEIGHT INCREASED [None]
